FAERS Safety Report 15136500 (Version 3)
Quarter: 2019Q4

REPORT INFORMATION
  Report Type: Spontaneous
  Country: US (occurrence: US)
  Receive Date: 20180712
  Receipt Date: 20191022
  Transmission Date: 20200122
  Serious: Yes (Other)
  Sender: FDA-Public Use
  Company Number: US-ELI_LILLY_AND_COMPANY-US201807002483

PATIENT
  Sex: Male

DRUGS (5)
  1. CIALIS [Suspect]
     Active Substance: TADALAFIL
     Indication: ERECTILE DYSFUNCTION
     Dosage: 20 MG, WEEKLY (1/W)
     Route: 065
     Dates: start: 20040903, end: 20100219
  2. CIALIS [Suspect]
     Active Substance: TADALAFIL
     Dosage: 20 MG, WEEKLY (1/W)
     Route: 065
     Dates: start: 20100908, end: 20110721
  3. VIAGRA [Suspect]
     Active Substance: SILDENAFIL CITRATE
     Indication: ERECTILE DYSFUNCTION
     Dosage: 100 MG, 1-2/W
     Route: 065
     Dates: start: 20030103, end: 20040902
  4. CIALIS [Suspect]
     Active Substance: TADALAFIL
     Dosage: 20 MG, WEEKLY (1/W)
     Route: 065
     Dates: start: 20100618, end: 20100717
  5. CIALIS [Suspect]
     Active Substance: TADALAFIL
     Dosage: 20 MG, WEEKLY (1/W)
     Route: 065
     Dates: start: 20130303, end: 20140126

REACTIONS (4)
  - Malignant melanoma stage IV [Unknown]
  - Malignant melanoma stage IV [Unknown]
  - Actinic keratosis [Recovered/Resolved]
  - Malignant melanoma stage I [Unknown]

NARRATIVE: CASE EVENT DATE: 20050827
